FAERS Safety Report 7899922-9 (Version None)
Quarter: 2011Q4

REPORT INFORMATION
  Report Type: 
  Country: None (occurrence: None)
  Receive Date: 20111107
  Receipt Date: 20111011
  Transmission Date: 20120403
  Serious: No
  Sender: FDA-Public Use
  Company Number: US-AMGEN-USASP2011016678

PATIENT
  Age: 80 Year
  Sex: Female

DRUGS (2)
  1. ENBREL [Suspect]
     Dates: start: 20010212
  2. ENBREL [Suspect]
     Indication: RHEUMATOID ARTHRITIS
     Dosage: 50 MG, Q2WK
     Dates: start: 20010101

REACTIONS (11)
  - ASTHENIA [None]
  - INJECTION SITE WARMTH [None]
  - FATIGUE [None]
  - RHEUMATOID ARTHRITIS [None]
  - THERAPEUTIC RESPONSE DECREASED [None]
  - DRY SKIN [None]
  - INJECTION SITE MASS [None]
  - DRUG INEFFECTIVE [None]
  - ERYTHEMA [None]
  - PRURITUS [None]
  - INJECTION SITE PRURITUS [None]
